FAERS Safety Report 10101696 (Version 1)
Quarter: 2014Q2

REPORT INFORMATION
  Report Type: Spontaneous
  Country: US (occurrence: None)
  Receive Date: 20140423
  Receipt Date: 20140423
  Transmission Date: 20141212
  Serious: Yes (Hospitalization)
  Sender: FDA-Public Use
  Company Number: None

PATIENT
  Age: 30 Year
  Sex: Female
  Weight: 56.7 kg

DRUGS (3)
  1. GIANVI [Suspect]
     Indication: CONTRACEPTION
     Dosage: ONCE
     Route: 048
  2. GIANVI [Suspect]
     Indication: POLYCYSTIC OVARIES
     Dosage: ONCE
     Route: 048
  3. GIANVI [Suspect]
     Indication: ACNE
     Dosage: ONCE
     Route: 048

REACTIONS (2)
  - Middle insomnia [None]
  - Pulmonary embolism [None]
